FAERS Safety Report 11415960 (Version 2)
Quarter: 2015Q4

REPORT INFORMATION
  Report Type: Spontaneous
  Country: US (occurrence: US)
  Receive Date: 20150825
  Receipt Date: 20151026
  Transmission Date: 20160304
  Serious: No
  Sender: FDA-Public Use
  Company Number: US-G+W LABORATORIES-1041339

PATIENT
  Sex: Female

DRUGS (3)
  1. FOSAMAX [Concomitant]
     Active Substance: ALENDRONATE SODIUM
     Route: 065
  2. CICLOPIROX. [Suspect]
     Active Substance: CICLOPIROX
     Indication: ONYCHOMYCOSIS
     Route: 061
     Dates: start: 20150622, end: 20150818
  3. OYSTER SHELL CALCIUM WITH VITAMIN D [Concomitant]
     Active Substance: CALCIUM\CHOLECALCIFEROL
     Route: 065

REACTIONS (7)
  - Oedema peripheral [Unknown]
  - Erythema [Unknown]
  - Wound [Unknown]
  - Dermatitis [Unknown]
  - Drug ineffective [Unknown]
  - Onycholysis [Unknown]
  - Nail operation [Unknown]

NARRATIVE: CASE EVENT DATE: 20150622
